FAERS Safety Report 19326210 (Version 1)
Quarter: 2021Q2

REPORT INFORMATION
  Report Type: Report from Study
  Country: PT (occurrence: PT)
  Receive Date: 20210528
  Receipt Date: 20210528
  Transmission Date: 20210717
  Serious: Yes (Hospitalization)
  Sender: FDA-Public Use
  Company Number: PT-MYLANLABS-2021M1030193

PATIENT
  Age: 45 Year
  Sex: Female
  Weight: 55 kg

DRUGS (20)
  1. DOCETAXEL. [Suspect]
     Active Substance: DOCETAXEL
     Indication: HER2 POSITIVE BREAST CANCER
     Dosage: 110 MILLIGRAM, Q3W (MOST RECENT DOSE WAS ON 28/MAR/2017)
     Route: 042
     Dates: start: 20161107
  2. TRIPTORELIN [Concomitant]
     Active Substance: TRIPTORELIN
     Dosage: ONGOING = CHECKED
     Dates: start: 20180312
  3. TAMOXIFEN [Suspect]
     Active Substance: TAMOXIFEN
     Indication: HER2 POSITIVE BREAST CANCER
     Dosage: 20 MILLIGRAM
     Route: 048
     Dates: start: 20170417
  4. PERTUZUMAB. [Suspect]
     Active Substance: PERTUZUMAB
     Indication: HER2 POSITIVE BREAST CANCER
     Dosage: 840 MILLIGRAM (MOST RECENT DOSE PRIOR TO THE EVENT: 28/NOV/2016)
     Route: 042
     Dates: start: 20161107, end: 20161128
  5. CLONIXIN [Concomitant]
     Active Substance: CLONIXIN
     Dosage: ONGOING = CHECKED
     Dates: start: 20161107
  6. PREGABALIN. [Concomitant]
     Active Substance: PREGABALIN
     Dosage: UNK
     Dates: start: 20180601
  7. ABACAVIR. [Concomitant]
     Active Substance: ABACAVIR
     Dosage: ONGOING = CHECKED
     Dates: start: 20180518
  8. NISTATIN [Concomitant]
     Active Substance: NYSTATIN
     Dosage: ONGOING = CHECKED
     Dates: start: 20161107
  9. TRASTUZUMAB. [Suspect]
     Active Substance: TRASTUZUMAB
     Indication: HER2 POSITIVE BREAST CANCER
     Dosage: 600 MG, Q3W (MOST RECENT DOSE WAS ON 12/MAR/2018)
     Route: 058
     Dates: start: 20161107, end: 20180312
  10. ALPRAZOLAM. [Concomitant]
     Active Substance: ALPRAZOLAM
     Dosage: ONGOING = NOT CHECKED
     Dates: start: 20170720, end: 20170727
  11. ESOMEPRAZOLE. [Concomitant]
     Active Substance: ESOMEPRAZOLE MAGNESIUM
     Dosage: ONGOING = CHECKED
     Dates: start: 20161107
  12. ISONIAZID. [Concomitant]
     Active Substance: ISONIAZID
     Dosage: UNK
     Dates: start: 20180401
  13. AMITRIPTYLINE [Concomitant]
     Active Substance: AMITRIPTYLINE
     Dosage: UNK
     Dates: start: 20180514
  14. METOCLOPRAMIDE. [Concomitant]
     Active Substance: METOCLOPRAMIDE
     Dosage: ONGOING = CHECKED
     Dates: start: 20161107
  15. DOLUTEGRAVIR [Concomitant]
     Active Substance: DOLUTEGRAVIR
     Dosage: ONGOING = CHECKED
     Dates: start: 20180518
  16. VORHYALURONIDASE ALFA [Suspect]
     Active Substance: HYALURONIDASE (HUMAN RECOMBINANT)
     Indication: HER2 POSITIVE BREAST CANCER
     Dosage: 600 MG, Q3W (MOST RECENT DOSE WAS ON 12/MAR/2018)
     Route: 058
     Dates: start: 20161107, end: 20180312
  17. ACYCLOVIR                          /00587301/ [Concomitant]
     Active Substance: ACYCLOVIR
     Dosage: UNK
     Dates: start: 20180503
  18. GABAPENTIN. [Concomitant]
     Active Substance: GABAPENTIN
     Dosage: ONGOING = CHECKED
     Dates: start: 20180601
  19. TENOFOVIR [Concomitant]
     Active Substance: TENOFOVIR
     Dosage: ONGOING = CHECKED
     Dates: start: 20180518
  20. GABAPENTIN. [Concomitant]
     Active Substance: GABAPENTIN
     Dosage: UNK
     Dates: start: 20180514, end: 20180531

REACTIONS (1)
  - Central nervous system lesion [Recovered/Resolved]

NARRATIVE: CASE EVENT DATE: 20180419
